FAERS Safety Report 4649263-8 (Version None)
Quarter: 2005Q2

REPORT INFORMATION
  Report Type: 
  Country: None (occurrence: None)
  Receive Date: 20050429
  Receipt Date: 20050427
  Transmission Date: 20051028
  Serious: Yes (Life-Threatening, Hospitalization)
  Sender: FDA-Public Use
  Company Number: NL-MERCK-0504NLD00029

PATIENT
  Age: 57 Year
  Sex: Male

DRUGS (6)
  1. ZETIA [Suspect]
     Indication: TYPE IIA HYPERLIPIDAEMIA
     Route: 048
     Dates: start: 20040909, end: 20050305
  2. ESOMEPRAZOLE MAGNESIUM [Concomitant]
     Route: 048
     Dates: start: 20031002
  3. CARBASPIRIN CALCIUM [Concomitant]
     Route: 048
     Dates: start: 20030603
  4. METOPROLOL TARTRATE [Concomitant]
     Route: 048
     Dates: start: 20030603
  5. ATORVASTATIN CALCIUM [Concomitant]
     Route: 048
     Dates: start: 20030603
  6. DEXAMETHASONE AND FRAMYCETIN SULFATE AND GRAMICIDIN [Concomitant]
     Route: 001
     Dates: start: 20041206, end: 20050306

REACTIONS (1)
  - CONVULSION [None]
